FAERS Safety Report 9517359 (Version 1)
Quarter: 2013Q3

REPORT INFORMATION
  Report Type: Report from Study
  Country: US (occurrence: US)
  Receive Date: 20130911
  Receipt Date: 20130911
  Transmission Date: 20140515
  Serious: Yes (Hospitalization)
  Sender: FDA-Public Use
  Company Number: US-B.I. PHARMACEUTICALS,INC./RIDGEFIELD-2013-BI-27656BI

PATIENT
  Age: 36 Year
  Sex: Male
  Weight: 125.3 kg

DRUGS (4)
  1. MICARDIS [Suspect]
     Indication: CONGENITAL CYSTIC KIDNEY DISEASE
     Dosage: 80 MG
     Route: 048
     Dates: start: 20060412, end: 20130820
  2. LISINOPRIL [Concomitant]
     Indication: HYPERTENSION
     Dosage: 40 MG
     Route: 048
     Dates: start: 20060412, end: 20130820
  3. DILTIAZEM [Concomitant]
     Indication: HYPERTENSION
     Dosage: 360 MG
     Route: 048
     Dates: start: 20130822, end: 20130824
  4. CARBETALOL [Concomitant]
     Indication: HYPERTENSION
     Dosage: 800 MG
     Route: 048
     Dates: start: 20071009

REACTIONS (2)
  - Abdominal pain [Recovered/Resolved]
  - Renal failure acute [Recovered/Resolved]
